FAERS Safety Report 8834291 (Version 1)
Quarter: 2012Q4

REPORT INFORMATION
  Report Type: 
  Country: US (occurrence: US)
  Receive Date: 20121010
  Receipt Date: 20121010
  Transmission Date: 20130627
  Serious: Yes (Other)
  Sender: FDA-Public Use
  Company Number: US-PFIZER INC-2012246004

PATIENT
  Age: 47 Year
  Sex: Female
  Weight: 54.42 kg

DRUGS (5)
  1. OXYCODONE HYDROCHLORIDE [Suspect]
     Indication: PAIN
     Dosage: 10 mg, 4x/day
     Route: 048
     Dates: start: 2009, end: 2012
  2. MORPHINE [Concomitant]
     Dosage: 30 mg, 3x/day
  3. ELAVIL [Concomitant]
     Dosage: 20 mg, UNK
  4. FLEXERIL [Concomitant]
     Dosage: 10 mg, UNK
  5. TEGRETOL [Concomitant]
     Dosage: UNK

REACTIONS (3)
  - Device dislocation [Unknown]
  - Withdrawal syndrome [Unknown]
  - Oesophageal disorder [Unknown]
